FAERS Safety Report 6874095-X (Version None)
Quarter: 2010Q3

REPORT INFORMATION
  Report Type: 
  Country: None (occurrence: None)
  Receive Date: 20100723
  Receipt Date: 20090424
  Transmission Date: 20110219
  Serious: No
  Sender: FDA-Public Use
  Company Number: US-PFIZER INC-2009191295

PATIENT
  Sex: Female
  Weight: 61.234 kg

DRUGS (4)
  1. CHANTIX [Suspect]
     Indication: SMOKING CESSATION THERAPY
     Dosage: 0.5 MG, 1X/DAY
     Route: 048
     Dates: start: 20090319, end: 20090322
  2. ZESTORETIC [Concomitant]
     Dosage: UNK
  3. PSYLLIUM [Concomitant]
     Dosage: UNK
  4. NATRECOR [Concomitant]
     Dosage: UNK

REACTIONS (1)
  - FEELING ABNORMAL [None]
